FAERS Safety Report 8154869 (Version 9)
Quarter: 2014Q2

REPORT INFORMATION
  Report Type: Spontaneous
  Country: US (occurrence: US)
  Receive Date: 20110923
  Receipt Date: 20140602
  Transmission Date: 20141212
  Serious: Yes (Disabling)
  Sender: FDA-Public Use
  Company Number: US-009507513-1109USA02510

PATIENT
  Sex: Male
  Weight: 71.67 kg

DRUGS (1)
  1. PROPECIA [Suspect]
     Indication: ANDROGENETIC ALOPECIA
     Dosage: 1 MG, QD
     Route: 048
     Dates: start: 20000426, end: 200702

REACTIONS (42)
  - Anxiety [Unknown]
  - Emotional distress [Unknown]
  - Erectile dysfunction [Unknown]
  - Testicular disorder [Unknown]
  - Orchitis [Unknown]
  - Arthralgia [Unknown]
  - Nerve injury [Unknown]
  - Arthralgia [Not Recovered/Not Resolved]
  - Paraesthesia [Not Recovered/Not Resolved]
  - Pharyngitis [Recovering/Resolving]
  - Palpitations [Unknown]
  - Hordeolum [Unknown]
  - Chest pain [Unknown]
  - Costochondritis [Unknown]
  - Mass [Unknown]
  - Epididymitis [Not Recovered/Not Resolved]
  - Epididymal cyst [Unknown]
  - Ear pain [Unknown]
  - Testicular mass [Unknown]
  - Penile wart [Not Recovered/Not Resolved]
  - Penile wart [Unknown]
  - Chloasma [Unknown]
  - Testicular microlithiasis [Not Recovered/Not Resolved]
  - Weight fluctuation [Unknown]
  - Visual impairment [Unknown]
  - Chest discomfort [Unknown]
  - Dyspepsia [Unknown]
  - Dysphagia [Unknown]
  - Diarrhoea [Unknown]
  - Constipation [Unknown]
  - Back pain [Unknown]
  - Spinal cord injury [Unknown]
  - Chest pain [Unknown]
  - Gastrooesophageal reflux disease [Unknown]
  - Dermal cyst [Unknown]
  - Blood urine present [Unknown]
  - Psychosexual disorder [Unknown]
  - Abdominal pain upper [Unknown]
  - Testicular pain [Not Recovered/Not Resolved]
  - Drug hypersensitivity [Unknown]
  - Libido decreased [Unknown]
  - Depression [Unknown]
